FAERS Safety Report 15289485 (Version 1)
Quarter: 2018Q3

REPORT INFORMATION
  Report Type: Report from Study
  Country: DE (occurrence: DE)
  Receive Date: 20180817
  Receipt Date: 20180817
  Transmission Date: 20181010
  Serious: Yes (Life-Threatening, Hospitalization, Other)
  Sender: FDA-Public Use
  Company Number: PHHY2018DE074423

PATIENT
  Sex: Female
  Weight: 55 kg

DRUGS (3)
  1. SOLU DECORTIN [Concomitant]
     Active Substance: PREDNISOLONE SODIUM SUCCINATE
     Indication: MULTIPLE SCLEROSIS RELAPSE
     Dosage: 1000 MG, UNK
     Route: 065
     Dates: start: 20170404, end: 20170406
  2. SOLU DECORTIN [Concomitant]
     Active Substance: PREDNISOLONE SODIUM SUCCINATE
     Dosage: 1000 MG, UNK
     Route: 065
     Dates: start: 20170711, end: 20170713
  3. GILENYA [Suspect]
     Active Substance: FINGOLIMOD HYDROCHLORIDE
     Indication: MULTIPLE SCLEROSIS
     Dosage: 0.5 MG, QD
     Route: 048
     Dates: start: 20160927

REACTIONS (3)
  - Rectal ulcer [Unknown]
  - Haemoglobin decreased [Recovered/Resolved]
  - Rectal ulcer haemorrhage [Recovered/Resolved]

NARRATIVE: CASE EVENT DATE: 20180327
